FAERS Safety Report 21805950 (Version 2)
Quarter: 2023Q1

REPORT INFORMATION
  Report Type: Spontaneous
  Country: US (occurrence: US)
  Receive Date: 20230102
  Receipt Date: 20230301
  Transmission Date: 20230417
  Serious: Yes (Hospitalization)
  Sender: FDA-Public Use
  Company Number: US-BRISTOL-MYERS SQUIBB COMPANY-2023-000233

PATIENT
  Age: 74 Year
  Sex: Female
  Weight: 68.04 kg

DRUGS (3)
  1. REVLIMID [Suspect]
     Active Substance: LENALIDOMIDE
     Indication: Plasma cell myeloma
     Dosage: D1-21 EVERY 28 DAYS
     Route: 048
     Dates: start: 20221223
  2. VELCADE [Concomitant]
     Active Substance: BORTEZOMIB
  3. VELCADE [Concomitant]
     Active Substance: BORTEZOMIB

REACTIONS (5)
  - Chest pain [Not Recovered/Not Resolved]
  - Cardiac disorder [Unknown]
  - Laboratory test abnormal [Unknown]
  - Hypotension [Unknown]
  - Anaemia [Unknown]

NARRATIVE: CASE EVENT DATE: 20230126
